FAERS Safety Report 9707791 (Version 1)
Quarter: 2013Q4

REPORT INFORMATION
  Report Type: Not Available
  Country: AU (occurrence: AU)
  Receive Date: 20131125
  Receipt Date: 20131125
  Transmission Date: 20140711
  Serious: Yes (Life-Threatening, Other)
  Sender: FDA-Public Use
  Company Number: AU-ASTELLAS-2013US012311

PATIENT
  Age: 77 Year
  Sex: Male

DRUGS (10)
  1. TARCEVA [Suspect]
     Indication: PRODUCT USED FOR UNKNOWN INDICATION
     Dosage: 150 MG, UID/QD
     Route: 065
  2. TARCEVA [Suspect]
     Dosage: 50 MG, UNKNOWN/D
     Route: 065
  3. ARATAC [Concomitant]
     Indication: PRODUCT USED FOR UNKNOWN INDICATION
     Dosage: UNK
     Route: 065
  4. SYMBICORT [Concomitant]
     Indication: PRODUCT USED FOR UNKNOWN INDICATION
     Dosage: 200-6 MCG, TWICE IN 1 DAY
     Route: 065
  5. ISCOVER [Concomitant]
     Indication: PRODUCT USED FOR UNKNOWN INDICATION
     Dosage: 75 MG, UID/QD
     Route: 065
  6. CLEXANE [Concomitant]
     Indication: THROMBOSIS
     Dosage: 100 MG/ML, UID/QD
     Route: 065
  7. NITROLINGUAL [Concomitant]
     Indication: ANGINA PECTORIS
     Dosage: 400-800 MCG,1-2 DOSES UNDER THE ONGUE WHEN REQUIRED
     Route: 065
  8. NITROLINGUAL [Concomitant]
     Indication: CHEST PAIN
  9. ENDONE [Concomitant]
     Indication: PAIN
     Dosage: 5 MG,1 IN3 HRS
     Route: 065
  10. OXYCONTIN [Concomitant]
     Indication: PAIN
     Dosage: 10 MG, BID
     Route: 065

REACTIONS (3)
  - Atrial fibrillation [Recovered/Resolved]
  - Duodenal ulcer [Recovered/Resolved]
  - Upper gastrointestinal haemorrhage [Recovered/Resolved]
